FAERS Safety Report 7241218-2 (Version None)
Quarter: 2011Q1

REPORT INFORMATION
  Report Type: 
  Country: None (occurrence: None)
  Receive Date: 20110124
  Receipt Date: 20110119
  Transmission Date: 20110831
  Serious: Yes (Death, Hospitalization)
  Sender: FDA-Public Use
  Company Number: A0758377A

PATIENT
  Age: 61 Year
  Sex: Male
  Weight: 86.4 kg

DRUGS (3)
  1. LANTUS [Concomitant]
     Dates: start: 20030101, end: 20080101
  2. AVANDIA [Suspect]
     Indication: TYPE 2 DIABETES MELLITUS
     Route: 048
     Dates: start: 20020101, end: 20080101
  3. GLUCOTROL [Concomitant]
     Dates: start: 19980101, end: 20080101

REACTIONS (5)
  - CORONARY ARTERY DISEASE [None]
  - CARDIAC FAILURE CONGESTIVE [None]
  - MYOCARDIAL INFARCTION [None]
  - ARTERIOSCLEROSIS [None]
  - CARDIAC ARREST [None]
